FAERS Safety Report 5317833-X (Version None)
Quarter: 2007Q2

REPORT INFORMATION
  Report Type: 
  Country: None (occurrence: None)
  Receive Date: 20070430
  Receipt Date: 20070412
  Transmission Date: 20071010
  Serious: Yes (Hospitalization)
  Sender: FDA-Public Use
  Company Number: VNL_0529_2007

PATIENT
  Sex: Male

DRUGS (2)
  1. APO-GO (APO-GO) [Suspect]
     Indication: PARKINSON'S DISEASE
     Dosage: (5 MG PER HOUR SUBCUTANEOUS)
     Route: 058
  2. LEVODOPA [Concomitant]

REACTIONS (1)
  - HAEMOLYTIC ANAEMIA [None]
